FAERS Safety Report 13396116 (Version 4)
Quarter: 2017Q2

REPORT INFORMATION
  Report Type: Spontaneous
  Country: US (occurrence: US)
  Receive Date: 20170403
  Receipt Date: 20170607
  Transmission Date: 20170830
  Serious: No
  Sender: FDA-Public Use
  Company Number: US-GLAXOSMITHKLINE-US2017GSK045514

PATIENT
  Age: 70 Year
  Sex: Female

DRUGS (1)
  1. ADVAIR DISKUS [Suspect]
     Active Substance: FLUTICASONE PROPIONATE\SALMETEROL XINAFOATE
     Indication: ASTHMA
     Dosage: 1 PUFF(S), BID
     Dates: end: 20170331

REACTIONS (8)
  - Product quality issue [Unknown]
  - Lip pain [Not Recovered/Not Resolved]
  - Lip swelling [Not Recovered/Not Resolved]
  - Hypersensitivity [Unknown]
  - Chapped lips [Not Recovered/Not Resolved]
  - Oral discomfort [Unknown]
  - Ill-defined disorder [Unknown]
  - Device allergy [Unknown]

NARRATIVE: CASE EVENT DATE: 201703
